FAERS Safety Report 7128615-0 (Version None)
Quarter: 2010Q4

REPORT INFORMATION
  Report Type: 
  Country: None (occurrence: None)
  Receive Date: 20101103
  Receipt Date: 20100323
  Transmission Date: 20110411
  Serious: Yes (Hospitalization, Disabling, Other)
  Sender: FDA-Public Use
  Company Number: 2010SP018401

PATIENT
  Age: 25 Year
  Sex: Female
  Weight: 99.7913 kg

DRUGS (2)
  1. NUVARING [Suspect]
     Indication: CONTRACEPTION
     Dosage: VAG
     Route: 067
     Dates: start: 20030101, end: 20040301
  2. HYDROCHLOROTHIAZIDE [Concomitant]

REACTIONS (13)
  - ABASIA [None]
  - CARDIOVASCULAR DISORDER [None]
  - CEREBRAL HAEMORRHAGE [None]
  - CEREBROVASCULAR ACCIDENT [None]
  - DEEP VEIN THROMBOSIS [None]
  - DRUG EXPOSURE BEFORE PREGNANCY [None]
  - DYSPNOEA [None]
  - EMOTIONAL DISTRESS [None]
  - GESTATIONAL DIABETES [None]
  - POOR PERIPHERAL CIRCULATION [None]
  - PREGNANCY [None]
  - RAYNAUD'S PHENOMENON [None]
  - THROMBOSIS [None]
